FAERS Safety Report 8288463-5 (Version None)
Quarter: 2012Q2

REPORT INFORMATION
  Report Type: 
  Country: None (occurrence: None)
  Receive Date: 20120416
  Receipt Date: 20120330
  Transmission Date: 20120825
  Serious: Yes (Death)
  Sender: FDA-Public Use
  Company Number: US-BAXTER-2012BAX001504

PATIENT
  Sex: Female

DRUGS (2)
  1. DIANEAL [Suspect]
     Indication: PERITONEAL DIALYSIS
     Route: 033
     Dates: end: 20120324
  2. DIANEAL [Suspect]
     Route: 033
     Dates: end: 20120324

REACTIONS (3)
  - HYPOGLYCAEMIC COMA [None]
  - FAILURE TO THRIVE [None]
  - THERAPY CESSATION [None]
